FAERS Safety Report 7414359-4 (Version None)
Quarter: 2011Q2

REPORT INFORMATION
  Report Type: 
  Country: None (occurrence: None)
  Receive Date: 20110407
  Receipt Date: 20110328
  Transmission Date: 20111010
  Serious: Yes (Hospitalization)
  Sender: FDA-Public Use
  Company Number: DAV-AE-MTC-11-013

PATIENT
  Age: 12 Year
  Sex: Male

DRUGS (3)
  1. METHOTREXATE [Suspect]
     Indication: BONE SARCOMA
     Dosage: 12G/M2
  2. CISPLATIN [Concomitant]
  3. DOXORUBICIN [Concomitant]

REACTIONS (3)
  - RENAL FAILURE ACUTE [None]
  - COAGULOPATHY [None]
  - HEPATOTOXICITY [None]
